FAERS Safety Report 15928838 (Version 3)
Quarter: 2019Q3

REPORT INFORMATION
  Report Type: Spontaneous
  Country: US (occurrence: US)
  Receive Date: 20190206
  Receipt Date: 20190812
  Transmission Date: 20191004
  Serious: Yes (Death, Hospitalization, Other)
  Sender: FDA-Public Use
  Company Number: US-ASTRAZENECA-2018SF27086

PATIENT
  Age: 21644 Day
  Sex: Female
  Weight: 64.4 kg

DRUGS (51)
  1. PRILOSEC [Suspect]
     Active Substance: OMEPRAZOLE MAGNESIUM
     Indication: GASTROOESOPHAGEAL REFLUX DISEASE
     Route: 048
  2. DIPHENOXYLATE [Concomitant]
     Active Substance: DIPHENOXYLATE
  3. FUROSEMIDE. [Concomitant]
     Active Substance: FUROSEMIDE
  4. NEXIUM [Suspect]
     Active Substance: ESOMEPRAZOLE MAGNESIUM
     Indication: GASTROOESOPHAGEAL REFLUX DISEASE
     Dosage: GENERIC
     Route: 065
  5. PRILOSEC OTC [Suspect]
     Active Substance: OMEPRAZOLE MAGNESIUM
     Indication: GASTROOESOPHAGEAL REFLUX DISEASE
     Route: 048
  6. PREVACID 24 HR [Suspect]
     Active Substance: LANSOPRAZOLE
     Indication: GASTROOESOPHAGEAL REFLUX DISEASE
     Route: 065
  7. HUMULIN NOS [Concomitant]
     Active Substance: INSULIN HUMAN
  8. OXYCODONE [Concomitant]
     Active Substance: OXYCODONE
  9. AMLODIPINE [Concomitant]
     Active Substance: AMLODIPINE BESYLATE
  10. GABAPENTIN. [Concomitant]
     Active Substance: GABAPENTIN
  11. TRAMADOL. [Concomitant]
     Active Substance: TRAMADOL
  12. ENALAPRIL [Concomitant]
     Active Substance: ENALAPRIL
  13. NEXIUM [Suspect]
     Active Substance: ESOMEPRAZOLE MAGNESIUM
     Indication: GASTROOESOPHAGEAL REFLUX DISEASE
     Route: 048
     Dates: start: 2008, end: 2018
  14. LORAZEPAM. [Concomitant]
     Active Substance: LORAZEPAM
  15. TOLNAFTATE. [Concomitant]
     Active Substance: TOLNAFTATE
  16. ESCITALOPRAM [Concomitant]
     Active Substance: ESCITALOPRAM OXALATE
  17. AZITHROMYCIN ANHYDROUS. [Concomitant]
     Active Substance: AZITHROMYCIN ANHYDROUS
  18. METRONIDAZOLE. [Concomitant]
     Active Substance: METRONIDAZOLE
  19. PREVACID [Suspect]
     Active Substance: LANSOPRAZOLE
     Indication: GASTROOESOPHAGEAL REFLUX DISEASE
     Dosage: GENERIC
     Route: 065
  20. PROTONIX [Suspect]
     Active Substance: PANTOPRAZOLE SODIUM
     Indication: GASTROOESOPHAGEAL REFLUX DISEASE
     Route: 065
  21. PROTONIX [Suspect]
     Active Substance: PANTOPRAZOLE SODIUM
     Indication: GASTROOESOPHAGEAL REFLUX DISEASE
     Dosage: GENERIC
     Route: 065
     Dates: start: 201605, end: 201606
  22. CIPROFLOXACIN. [Concomitant]
     Active Substance: CIPROFLOXACIN
  23. CLOTRIMAZOLE. [Concomitant]
     Active Substance: CLOTRIMAZOLE
  24. MUPIROCIN. [Concomitant]
     Active Substance: MUPIROCIN
  25. PROMETHAZINE [Concomitant]
     Active Substance: PROMETHAZINE HYDROCHLORIDE
  26. HYDROCHLOROTHIAZIDE. [Concomitant]
     Active Substance: HYDROCHLOROTHIAZIDE
  27. NEXIUM [Suspect]
     Active Substance: ESOMEPRAZOLE MAGNESIUM
     Indication: GASTROOESOPHAGEAL REFLUX DISEASE
     Route: 048
     Dates: start: 20101116, end: 20150826
  28. PRILOSEC [Suspect]
     Active Substance: OMEPRAZOLE MAGNESIUM
     Indication: GASTROOESOPHAGEAL REFLUX DISEASE
     Route: 048
  29. PREVACID 24 HR [Suspect]
     Active Substance: LANSOPRAZOLE
     Indication: GASTROOESOPHAGEAL REFLUX DISEASE
     Route: 065
     Dates: end: 201508
  30. PRAVASTATIN. [Concomitant]
     Active Substance: PRAVASTATIN
  31. LANTUS [Concomitant]
     Active Substance: INSULIN GLARGINE
  32. JANUVIA [Concomitant]
     Active Substance: SITAGLIPTIN PHOSPHATE
  33. CETRIZINE [Concomitant]
     Active Substance: CETIRIZINE HYDROCHLORIDE
  34. NEXIUM 24HR [Suspect]
     Active Substance: ESOMEPRAZOLE MAGNESIUM
     Indication: GASTROOESOPHAGEAL REFLUX DISEASE
     Route: 048
  35. PRILOSEC [Suspect]
     Active Substance: OMEPRAZOLE MAGNESIUM
     Indication: GASTROOESOPHAGEAL REFLUX DISEASE
     Dosage: GENERIC
     Route: 065
  36. BENICAR [Concomitant]
     Active Substance: OLMESARTAN MEDOXOMIL
  37. MORPHINE SULPHATE [Concomitant]
     Active Substance: MORPHINE SULFATE
  38. AMOXICILLIN. [Concomitant]
     Active Substance: AMOXICILLIN
  39. ZOLPIDEM [Concomitant]
     Active Substance: ZOLPIDEM TARTRATE
  40. XALATAN [Concomitant]
     Active Substance: LATANOPROST
  41. SODIUM CHLORIDE. [Concomitant]
     Active Substance: SODIUM CHLORIDE
  42. NEXIUM [Suspect]
     Active Substance: ESOMEPRAZOLE MAGNESIUM
     Indication: GASTROOESOPHAGEAL REFLUX DISEASE
     Dosage: GENERIC
     Route: 065
     Dates: start: 2015, end: 2017
  43. PREVACID [Suspect]
     Active Substance: LANSOPRAZOLE
     Indication: GASTROOESOPHAGEAL REFLUX DISEASE
     Route: 065
  44. ONDANSETRON [Concomitant]
     Active Substance: ONDANSETRON
  45. GENTAMICIN. [Concomitant]
     Active Substance: GENTAMICIN
  46. OLMESARTAN [Concomitant]
     Active Substance: OLMESARTAN
  47. FERROUS SULFATE. [Concomitant]
     Active Substance: FERROUS SULFATE
  48. NEXIUM [Suspect]
     Active Substance: ESOMEPRAZOLE MAGNESIUM
     Indication: GASTROOESOPHAGEAL REFLUX DISEASE
     Route: 048
     Dates: start: 201011, end: 201508
  49. NOVOLOG [Concomitant]
     Active Substance: INSULIN ASPART
  50. TEMAZEPAM. [Concomitant]
     Active Substance: TEMAZEPAM
  51. TIMOLOL. [Concomitant]
     Active Substance: TIMOLOL

REACTIONS (5)
  - Diabetes mellitus [Fatal]
  - Acute kidney injury [Not Recovered/Not Resolved]
  - Cardiac failure chronic [Fatal]
  - Renal failure [Fatal]
  - Chronic kidney disease [Not Recovered/Not Resolved]

NARRATIVE: CASE EVENT DATE: 20160105
